FAERS Safety Report 15745468 (Version 1)
Quarter: 2018Q4

REPORT INFORMATION
  Report Type: Spontaneous
  Country: ES (occurrence: ES)
  Receive Date: 20181220
  Receipt Date: 20181220
  Transmission Date: 20190205
  Serious: Yes (Other)
  Sender: FDA-Public Use
  Company Number: ES-PFIZER INC-2018517916

PATIENT
  Age: 89 Year
  Sex: Female

DRUGS (10)
  1. SEGURIL [Concomitant]
     Active Substance: FUROSEMIDE
  2. HIPERTENE [Concomitant]
  3. DEPRAX [TRAZODONE HYDROCHLORIDE] [Concomitant]
  4. NOCTAMID [Suspect]
     Active Substance: LORMETAZEPAM
     Dosage: 5 GTT, 1X/DAY (5 DROPLETS FOR THE NIGHT)
     Route: 048
     Dates: start: 20181121, end: 20181124
  5. ADIRO [Concomitant]
     Active Substance: ASPIRIN
  6. TRANKIMAZIN [Suspect]
     Active Substance: ALPRAZOLAM
     Dosage: 0.5 MG, 2X/DAY (12H, 1-0-1. AFTER ADR REDUCED TO 1-0-0)
     Route: 048
     Dates: start: 20170706
  7. BISOLVON [Suspect]
     Active Substance: BROMHEXINE HYDROCHLORIDE
     Indication: COUGH
     Dosage: 10 ML, UNK
     Route: 048
     Dates: start: 20181123, end: 20181124
  8. FOLIC ACID. [Concomitant]
     Active Substance: FOLIC ACID
  9. ELIQUIS [Concomitant]
     Active Substance: APIXABAN
  10. FORMODUAL [Concomitant]

REACTIONS (3)
  - Cyanosis [Recovering/Resolving]
  - Somnolence [Recovering/Resolving]
  - Ecchymosis [Recovering/Resolving]

NARRATIVE: CASE EVENT DATE: 20181124
